FAERS Safety Report 7955749-0 (Version None)
Quarter: 2011Q4

REPORT INFORMATION
  Report Type: 
  Country: None (occurrence: None)
  Receive Date: 20111204
  Receipt Date: 20060420
  Transmission Date: 20120403
  Serious: Yes (Other)
  Sender: FDA-Public Use
  Company Number: PHHY2006MX04199

PATIENT
  Age: 72 Year
  Sex: Female

DRUGS (1)
  1. DIOVAN HCT [Suspect]
     Indication: HYPERTENSION
     Dosage: 320/50MG, DAILY
     Route: 048
     Dates: start: 20060202

REACTIONS (2)
  - FALL [None]
  - SPINAL COLUMN INJURY [None]
